FAERS Safety Report 8121172-1 (Version None)
Quarter: 2012Q1

REPORT INFORMATION
  Report Type: 
  Country: None (occurrence: None)
  Receive Date: 20120203
  Receipt Date: 20120120
  Transmission Date: 20120608
  Serious: Yes (Other)
  Sender: FDA-Public Use
  Company Number: NSR_00478_2012

PATIENT
  Age: 41 Year
  Sex: Female

DRUGS (3)
  1. LAMOTRIGINE [Suspect]
     Indication: PSYCHOTIC DISORDER
     Dosage: (150 MG QD), (250 MG QD)
     Dates: start: 20070101
  2. CLOZAPINE [Suspect]
     Indication: PSYCHOTIC DISORDER
     Dosage: (DF), (DF)
     Dates: start: 20020101
  3. RISPERIDONE [Concomitant]

REACTIONS (7)
  - SEDATION [None]
  - NO THERAPEUTIC RESPONSE [None]
  - AGRANULOCYTOSIS [None]
  - EXTRAPYRAMIDAL DISORDER [None]
  - NEUTROPHIL COUNT DECREASED [None]
  - CONDITION AGGRAVATED [None]
  - PSYCHOTIC DISORDER [None]
